FAERS Safety Report 16315925 (Version 2)
Quarter: 2019Q4

REPORT INFORMATION
  Report Type: Spontaneous
  Country: US (occurrence: US)
  Receive Date: 20190515
  Receipt Date: 20191209
  Transmission Date: 20200122
  Serious: No
  Sender: FDA-Public Use
  Company Number: US-SA-2019SA125967

PATIENT
  Age: 46 Year
  Sex: Male
  Weight: 131.9 kg

DRUGS (29)
  1. FABRAZYME [Suspect]
     Active Substance: AGALSIDASE BETA
     Indication: LIPIDOSIS
     Dosage: 135 MG, QOW
     Route: 042
     Dates: start: 20051109
  2. NORMAL SALINE [Concomitant]
     Active Substance: SODIUM CHLORIDE
     Dosage: 0.9 UNK
     Route: 065
     Dates: start: 20190509
  3. CBD OIL [Concomitant]
     Active Substance: CANNABIDIOL\HERBALS
     Dosage: 0.5 TAB, BID
     Route: 048
     Dates: start: 20190508
  4. MORPHINE [Concomitant]
     Active Substance: MORPHINE
     Dosage: 1 TAB, TID
     Route: 048
     Dates: start: 20130919
  5. ACETAMINOPHEN. [Concomitant]
     Active Substance: ACETAMINOPHEN
     Dosage: 1000 MG PRIOR
     Route: 048
     Dates: start: 20191113
  6. DIPHENHYDRAMINE. [Concomitant]
     Active Substance: DIPHENHYDRAMINE
     Indication: ANAPHYLACTIC REACTION
     Dosage: 25 MG, PRN
     Route: 065
     Dates: start: 20190509
  7. DIPHENHYDRAMINE. [Concomitant]
     Active Substance: DIPHENHYDRAMINE
     Dosage: 25 MG, PRN
     Route: 048
     Dates: start: 20191113
  8. LORATADINE. [Concomitant]
     Active Substance: LORATADINE
     Dosage: 10 UNK
     Route: 048
     Dates: start: 20191113
  9. NORMAL SALINE [Concomitant]
     Active Substance: SODIUM CHLORIDE
     Dosage: 0.9 0 %
     Route: 042
     Dates: start: 20191113
  10. SODIUM CHLORIDE. [Concomitant]
     Active Substance: SODIUM CHLORIDE
     Dosage: 0.90 %UNK
     Route: 042
     Dates: start: 20191113
  11. HYDROXYZINE [Concomitant]
     Active Substance: HYDROXYZINE HYDROCHLORIDE
     Dosage: 25 MG, TID
     Route: 048
     Dates: start: 20191024
  12. ASPIRIN [ACETYLSALICYLIC ACID] [Concomitant]
     Active Substance: ASPIRIN
     Dosage: 81 MG, QD
     Route: 048
     Dates: start: 20190225
  13. BACTRIM DS [Concomitant]
     Active Substance: SULFAMETHOXAZOLE\TRIMETHOPRIM
     Dosage: 1 DF, BID
     Route: 048
     Dates: start: 20170630
  14. ACETAMINOPHEN. [Concomitant]
     Active Substance: ACETAMINOPHEN
     Dosage: 1000 MG
     Route: 065
     Dates: start: 20190509
  15. LORATADINE. [Concomitant]
     Active Substance: LORATADINE
     Dosage: 10 MG
     Route: 065
     Dates: start: 20190509
  16. STERILE WATER [Concomitant]
     Active Substance: WATER
     Dosage: 27 ML
     Route: 042
     Dates: start: 20191113
  17. DULOXETINE. [Concomitant]
     Active Substance: DULOXETINE
     Dosage: 50 MG, BID
     Route: 048
     Dates: start: 20191024
  18. VICODIN [Concomitant]
     Active Substance: ACETAMINOPHEN\HYDROCODONE BITARTRATE
     Dosage: 1 DF AS DIRECTED
     Route: 048
     Dates: start: 20131106
  19. CYMBALTA [Concomitant]
     Active Substance: DULOXETINE HYDROCHLORIDE
     Dosage: 60 MG, TID
     Route: 048
     Dates: start: 20130909
  20. CYMBALTA [Concomitant]
     Active Substance: DULOXETINE HYDROCHLORIDE
     Dosage: 1 CAP, QD
     Route: 048
     Dates: start: 20130919
  21. CARDURA [Concomitant]
     Active Substance: DOXAZOSIN MESYLATE
     Dosage: 10 MG, QD
     Route: 048
  22. FABRAZYME [Suspect]
     Active Substance: AGALSIDASE BETA
     Indication: FABRY^S DISEASE
     Dosage: 135 MG, QOW
     Route: 065
     Dates: start: 20060418
  23. STERILE WATER [Concomitant]
     Active Substance: WATER
     Dosage: UNK
     Route: 065
     Dates: start: 20190509
  24. EPINEPHRINE. [Concomitant]
     Active Substance: EPINEPHRINE
     Indication: ANAPHYLACTIC REACTION
     Dosage: UNK UNK, PRN
     Route: 065
     Dates: start: 20190509
  25. BUSPIRONE [Concomitant]
     Active Substance: BUSPIRONE HYDROCHLORIDE
     Dosage: 1 TAB, BID
     Route: 048
     Dates: start: 20130919
  26. SODIUM CHLORIDE. [Concomitant]
     Active Substance: SODIUM CHLORIDE
     Dosage: UNK
     Route: 065
     Dates: start: 20190509
  27. EPINEPHRINE. [Concomitant]
     Active Substance: EPINEPHRINE
     Dosage: 0.3 MG, PRN
     Route: 030
     Dates: start: 20191113
  28. MS CONTIN [Concomitant]
     Active Substance: MORPHINE SULFATE
     Dosage: 60 MG, TID
     Route: 065
     Dates: start: 20130919
  29. SULFAMETHOXAZOLE AND TRIMETHOPRIM [Concomitant]
     Active Substance: SULFAMETHOXAZOLE\TRIMETHOPRIM
     Dosage: UNK
     Route: 065
     Dates: start: 20170630

REACTIONS (2)
  - Product use in unapproved indication [Unknown]
  - Myalgia [Not Recovered/Not Resolved]
